FAERS Safety Report 14309397 (Version 1)
Quarter: 2017Q4

REPORT INFORMATION
  Report Type: Spontaneous
  Country: IT (occurrence: IT)
  Receive Date: 20171220
  Receipt Date: 20171220
  Transmission Date: 20180321
  Serious: Yes (Other)
  Sender: FDA-Public Use
  Company Number: IT-TEVA-2017-IT-828572

PATIENT
  Age: 59 Year
  Sex: Female

DRUGS (1)
  1. LEVOFLOXACIN. [Suspect]
     Active Substance: LEVOFLOXACIN
     Indication: BRONCHITIS
     Dosage: 500 MILLIGRAM DAILY;
     Route: 048
     Dates: start: 20171103, end: 20171107

REACTIONS (6)
  - Urticaria [Unknown]
  - Heart rate increased [Unknown]
  - Erythema [Unknown]
  - Blood pressure increased [Unknown]
  - Skin lesion [Unknown]
  - Prurigo [Unknown]

NARRATIVE: CASE EVENT DATE: 20171106
